FAERS Safety Report 4415438-6 (Version None)
Quarter: 2004Q3

REPORT INFORMATION
  Report Type: 
  Country: None (occurrence: None)
  Receive Date: 20040804
  Receipt Date: 20040728
  Transmission Date: 20050211
  Serious: Yes (Hospitalization)
  Sender: FDA-Public Use
  Company Number: PHEH2004US08182

PATIENT
  Age: 47 Year
  Sex: Female
  Weight: 64 kg

DRUGS (4)
  1. DIOVAN [Suspect]
     Indication: HYPERTENSION
     Dosage: 160 MG/DAY
     Route: 048
     Dates: start: 20040707, end: 20040712
  2. DIOVAN [Suspect]
     Dosage: 160 MG, BID
     Route: 048
     Dates: start: 20040713
  3. METOPROLOL [Suspect]
     Indication: HYPERTENSION
     Dosage: 50 MG, BID
     Route: 048
     Dates: start: 20040709
  4. AMLODIPINE [Concomitant]

REACTIONS (2)
  - BLOOD PRESSURE INADEQUATELY CONTROLLED [None]
  - RENAL DISORDER [None]
